FAERS Safety Report 6645380-1 (Version None)
Quarter: 2010Q1

REPORT INFORMATION
  Report Type: 
  Country: None (occurrence: None)
  Receive Date: 20100322
  Receipt Date: 20100315
  Transmission Date: 20100710
  Serious: Yes (Life-Threatening, Hospitalization)
  Sender: FDA-Public Use
  Company Number: FR-MERCK-1003FRA00047

PATIENT
  Age: 88 Year
  Sex: Female

DRUGS (13)
  1. COZAAR [Suspect]
     Indication: HYPERTENSION
     Route: 048
     Dates: end: 20091231
  2. ACENOCOUMAROL [Suspect]
     Indication: ARRHYTHMIA
     Route: 048
     Dates: end: 20091231
  3. ACENOCOUMAROL [Suspect]
     Indication: ATRIAL FIBRILLATION
     Route: 048
     Dates: end: 20091231
  4. POTASSIUM CHLORIDE [Suspect]
     Indication: HYPOKALAEMIA
     Route: 048
     Dates: end: 20091231
  5. CLOBAZAM [Suspect]
     Indication: ANXIETY
     Route: 048
     Dates: end: 20091231
  6. CALCIUM CARBONATE AND CHOLECALCIFEROL [Suspect]
     Indication: CALCIUM DEFICIENCY
     Route: 048
     Dates: end: 20091231
  7. FOSFOMYCIN TROMETHAMINE [Suspect]
     Indication: CYSTITIS
     Route: 048
     Dates: start: 20091212, end: 20091231
  8. REPAGLINIDE [Suspect]
     Indication: TYPE 2 DIABETES MELLITUS
     Route: 048
     Dates: end: 20091231
  9. CARBIMAZOLE [Concomitant]
     Route: 065
  10. NITROGLYCERIN [Concomitant]
     Route: 065
  11. FUROSEMIDE [Concomitant]
     Route: 065
  12. AMIODARONE HYDROCHLORIDE [Concomitant]
     Route: 065
  13. NICARDIPINE HYDROCHLORIDE [Concomitant]
     Route: 065

REACTIONS (2)
  - ABDOMINAL WALL HAEMATOMA [None]
  - INTRA-ABDOMINAL HAEMATOMA [None]
